FAERS Safety Report 5671150-7 (Version None)
Quarter: 2008Q1

REPORT INFORMATION
  Report Type: 
  Country: None (occurrence: None)
  Receive Date: 20080318
  Receipt Date: 20080305
  Transmission Date: 20080703
  Serious: Yes (Other)
  Sender: FDA-Public Use
  Company Number: US-ELI_LILLY_AND_COMPANY-US200802005039

PATIENT
  Age: 16 Year
  Sex: Male
  Weight: 65.76 kg

DRUGS (1)
  1. STRATTERA [Suspect]
     Dosage: 80 MG, UNK
     Dates: start: 20071001

REACTIONS (1)
  - JAW FRACTURE [None]
